FAERS Safety Report 19151335 (Version 1)
Quarter: 2021Q2

REPORT INFORMATION
  Report Type: Spontaneous
  Country: HR (occurrence: HR)
  Receive Date: 20210419
  Receipt Date: 20210419
  Transmission Date: 20210717
  Serious: Yes (Other)
  Sender: FDA-Public Use
  Company Number: HR-CELLTRION INC.-2021HR005291

PATIENT

DRUGS (2)
  1. INFLECTRA [Suspect]
     Active Substance: INFLIXIMAB-DYYB
     Dosage: 300 MG
     Dates: start: 20160921
  2. MESALAZINE [Suspect]
     Active Substance: MESALAMINE
     Dosage: 3 G
     Route: 048

REACTIONS (3)
  - Pseudopolyposis [Unknown]
  - Faecal calprotectin increased [Unknown]
  - Large intestinal stenosis [Unknown]

NARRATIVE: CASE EVENT DATE: 2018
